FAERS Safety Report 8198760-X (Version None)
Quarter: 2012Q1

REPORT INFORMATION
  Report Type: 
  Country: None (occurrence: None)
  Receive Date: 20120309
  Receipt Date: 20120210
  Transmission Date: 20120608
  Serious: No
  Sender: FDA-Public Use
  Company Number: US-AMGEN-USASP2012009295

PATIENT
  Age: 58 Year
  Sex: Female

DRUGS (6)
  1. CLONIDINE [Concomitant]
  2. FEMARA [Concomitant]
  3. SERTRALINE HYDROCHLORIDE [Concomitant]
  4. FISH OIL [Concomitant]
  5. PROLIA [Suspect]
     Indication: OSTEOPOROSIS
     Dosage: 60 MG, Q6MO
     Route: 058
     Dates: start: 20120112
  6. CALCIUM [Concomitant]

REACTIONS (1)
  - ARTHRALGIA [None]
